FAERS Safety Report 7582953-6 (Version None)
Quarter: 2011Q2

REPORT INFORMATION
  Report Type: 
  Country: None (occurrence: None)
  Receive Date: 20110630
  Receipt Date: 20081015
  Transmission Date: 20111010
  Serious: Yes (Hospitalization, Other)
  Sender: FDA-Public Use
  Company Number: US-BAYER-200836216NA

PATIENT
  Age: 75 Year
  Sex: Female
  Weight: 71 kg

DRUGS (12)
  1. TRASYLOL [Suspect]
     Indication: HEART VALVE REPLACEMENT
     Dosage: 1 ML INITIAL TEST DOSE
     Route: 042
     Dates: start: 19950621
  2. INDERAL [Concomitant]
     Dosage: 60 MG, QD
     Route: 048
  3. LISINOPRIL [Concomitant]
     Dosage: 5 MG, QD
     Route: 048
  4. VANCOMYCIN [Concomitant]
     Dosage: UNK
     Route: 042
     Dates: start: 19950621
  5. ISOSORBIDE [Concomitant]
     Dosage: 10 MG, QID
     Route: 048
  6. DOBUTAMINE HCL [Concomitant]
     Dosage: UNK
     Route: 042
     Dates: start: 19950621
  7. VALIUM [Concomitant]
     Dosage: UNK
     Route: 042
     Dates: start: 19950621
  8. TRASYLOL [Suspect]
     Dosage: LOADING DOSE
     Route: 042
     Dates: start: 19950621
  9. NITROGLYCERIN [Concomitant]
     Route: 048
  10. HEPARIN [Concomitant]
     Dosage: 15,000 UNITS
     Route: 042
     Dates: start: 19950621
  11. ACETYLSALICYLIC ACID SRT [Concomitant]
     Dosage: 650 MG, QD
     Route: 048
  12. FENTANYL [Concomitant]
     Dosage: UNK
     Route: 042
     Dates: start: 19950621

REACTIONS (5)
  - EMOTIONAL DISTRESS [None]
  - EMBOLIC STROKE [None]
  - UNEVALUABLE EVENT [None]
  - PAIN [None]
  - INJURY [None]
